FAERS Safety Report 18223800 (Version 2)
Quarter: 2020Q3

REPORT INFORMATION
  Report Type: Report from Study
  Country: LB (occurrence: LB)
  Receive Date: 20200902
  Receipt Date: 20200908
  Transmission Date: 20201103
  Serious: Yes (Death)
  Sender: FDA-Public Use
  Company Number: NVSC2020LB240863

PATIENT
  Sex: Male
  Weight: 75 kg

DRUGS (1)
  1. REVOLADE [Suspect]
     Active Substance: ELTROMBOPAG
     Indication: IMMUNE THROMBOCYTOPENIA
     Dosage: 1 DF, QD
     Route: 048
     Dates: start: 201912, end: 202008

REACTIONS (2)
  - White blood cell count decreased [Fatal]
  - Disease complication [Fatal]
